FAERS Safety Report 9186948 (Version 1)
Quarter: 2013Q1

REPORT INFORMATION
  Report Type: Spontaneous
  Country: JP (occurrence: JP)
  Receive Date: 20130325
  Receipt Date: 20130325
  Transmission Date: 20140127
  Serious: Yes (Other)
  Sender: FDA-Public Use
  Company Number: JP-NOVOPROD-373153

PATIENT
  Age: 74 Year
  Sex: Male
  Weight: 50 kg

DRUGS (6)
  1. VICTOZA HIKACHU INJECTION [Suspect]
     Indication: TYPE 2 DIABETES MELLITUS
     Dosage: 0.3 MG, QD
     Route: 058
     Dates: start: 20100630
  2. VICTOZA HIKACHU INJECTION [Suspect]
     Dosage: 0.6 MG, QD
     Route: 058
     Dates: start: 20100714
  3. VICTOZA HIKACHU INJECTION [Suspect]
     Dosage: 0.9 MG, QD
     Route: 058
     Dates: start: 20100721
  4. AMARYL [Concomitant]
     Indication: TYPE 2 DIABETES MELLITUS
     Dosage: 0.5 MG, QD
     Dates: start: 20031004
  5. BROTIZOLAN [Concomitant]
     Indication: INSOMNIA
     Dosage: 0.25 MG, QD
     Route: 048
     Dates: start: 20040726
  6. MYSLEE [Concomitant]
     Indication: INSOMNIA
     Dosage: 5 MG, QD
     Route: 048
     Dates: start: 20101014

REACTIONS (1)
  - Pancreatic neoplasm [Unknown]
